FAERS Safety Report 7078402-7 (Version None)
Quarter: 2010Q4

REPORT INFORMATION
  Report Type: 
  Country: None (occurrence: None)
  Receive Date: 20101102
  Receipt Date: 20101028
  Transmission Date: 20110411
  Serious: Yes (Death)
  Sender: FDA-Public Use
  Company Number: CO-BAYER-200813596LA

PATIENT
  Age: 56 Year
  Sex: Male
  Weight: 70 kg

DRUGS (3)
  1. NEXAVAR [Suspect]
     Indication: RENAL CANCER
     Dosage: AS USED: 400 MG  UNIT DOSE: 400 MG
     Route: 048
     Dates: start: 20071207, end: 20080415
  2. NEXAVAR [Suspect]
     Dosage: AS USED: 400 MG  UNIT DOSE: 400 MG
     Route: 048
     Dates: start: 20080416, end: 20080429
  3. TRAMADOL [Concomitant]
     Dosage: FREQUENCY: EVERY 8 HOURS
     Route: 065
     Dates: start: 20080420, end: 20080429

REACTIONS (1)
  - MULTI-ORGAN FAILURE [None]
